FAERS Safety Report 7271525-9 (Version None)
Quarter: 2011Q1

REPORT INFORMATION
  Report Type: 
  Country: None (occurrence: None)
  Receive Date: 20110128
  Receipt Date: 20110128
  Transmission Date: 20110831
  Serious: Yes (Other)
  Sender: FDA-Public Use
  Company Number: None

PATIENT
  Age: 71 Year
  Sex: Female
  Weight: 56.6996 kg

DRUGS (1)
  1. SPIRIVA [Suspect]
     Dosage: INHALE THE CONTENTS OF 1 CAPSULE DAILY

REACTIONS (5)
  - DRUG INEFFECTIVE [None]
  - PRODUCT SIZE ISSUE [None]
  - CAPSULE PHYSICAL ISSUE [None]
  - PRODUCT COLOUR ISSUE [None]
  - PRODUCT FRIABLE [None]
